FAERS Safety Report 5314912-8 (Version None)
Quarter: 2007Q2

REPORT INFORMATION
  Report Type: 
  Country: None (occurrence: None)
  Receive Date: 20070502
  Receipt Date: 20070423
  Transmission Date: 20071010
  Serious: Yes (Disabling)
  Sender: FDA-Public Use
  Company Number: NL-JNJFOC-20070405172

PATIENT
  Sex: Female
  Weight: 75 kg

DRUGS (4)
  1. REMINYL [Suspect]
     Indication: DEMENTIA ALZHEIMER'S TYPE
  2. EXELON [Suspect]
     Indication: DRUG USE FOR UNKNOWN INDICATION
  3. ACIDUM ACETYLSALICYLICUM [Concomitant]
     Indication: DRUG USE FOR UNKNOWN INDICATION
  4. IRON SUPPLEMENT [Concomitant]

REACTIONS (1)
  - MENIERE'S DISEASE [None]
